FAERS Safety Report 23149318 (Version 2)
Quarter: 2023Q4

REPORT INFORMATION
  Report Type: Report from Study
  Country: RO (occurrence: RO)
  Receive Date: 20231106
  Receipt Date: 20231108
  Transmission Date: 20240109
  Serious: Yes (Hospitalization)
  Sender: FDA-Public Use
  Company Number: RO-ABBVIE-5475767

PATIENT
  Age: 79 Year
  Sex: Female

DRUGS (8)
  1. GLECAPREVIR\PIBRENTASVIR [Suspect]
     Active Substance: GLECAPREVIR\PIBRENTASVIR
     Indication: Chronic hepatitis C
     Dosage: 300 MG/ 120 MG
     Route: 048
     Dates: start: 20230922, end: 20231017
  2. Noliprel [Concomitant]
     Indication: Hypertension
     Route: 065
     Dates: start: 2020, end: 20231016
  3. CORDARONE [Concomitant]
     Active Substance: AMIODARONE HYDROCHLORIDE
     Indication: Coronary artery disease
     Route: 065
     Dates: start: 2020, end: 20231016
  4. ZOMEN [Concomitant]
     Indication: Hypertension
     Dosage: 30 MILLIGRAM
     Route: 065
     Dates: start: 20230919
  5. NEBIVOLOL [Concomitant]
     Active Substance: NEBIVOLOL
     Indication: Hypertension
     Dosage: 5 MILLIGRAM
     Dates: start: 20230919
  6. Kardiolin [Concomitant]
     Indication: Coronary artery disease
     Route: 065
     Dates: start: 20230919
  7. SPIRONOLACTONE [Concomitant]
     Active Substance: SPIRONOLACTONE
     Indication: Cardiac failure congestive
     Dosage: 50 MILLIGRAM
     Route: 065
     Dates: start: 20230919
  8. XARELTO [Concomitant]
     Active Substance: RIVAROXABAN
     Indication: Coronary artery disease
     Route: 065
     Dates: start: 2020, end: 20231016

REACTIONS (6)
  - Acute respiratory distress syndrome [Not Recovered/Not Resolved]
  - Vomiting [Not Recovered/Not Resolved]
  - Asthenia [Not Recovered/Not Resolved]
  - Multiple organ dysfunction syndrome [Not Recovered/Not Resolved]
  - Decreased appetite [Not Recovered/Not Resolved]
  - Jaundice [Not Recovered/Not Resolved]

NARRATIVE: CASE EVENT DATE: 20231016
